FAERS Safety Report 6426409-2 (Version None)
Quarter: 2009Q4

REPORT INFORMATION
  Report Type: 
  Country: None (occurrence: None)
  Receive Date: 20091104
  Receipt Date: 20091027
  Transmission Date: 20100525
  Serious: Yes (Hospitalization)
  Sender: FDA-Public Use
  Company Number: CH-ASTRAZENECA-2009SE23520

PATIENT
  Age: 56 Year
  Sex: Female
  Weight: 48 kg

DRUGS (8)
  1. SEROQUEL XR [Suspect]
     Indication: PSYCHOTIC DISORDER
     Route: 048
     Dates: start: 20090907
  2. SEROQUEL XR [Suspect]
     Route: 048
     Dates: end: 20090918
  3. DISTRANEURIN [Suspect]
     Route: 048
     Dates: start: 20090909
  4. PAROXETINE HCL [Suspect]
     Indication: DEPRESSION
     Route: 048
     Dates: start: 20090903
  5. PAROXETINE HCL [Suspect]
     Route: 048
     Dates: end: 20090918
  6. CIPROFLOXACIN [Suspect]
     Indication: URINARY TRACT INFECTION
     Route: 048
     Dates: start: 20090909, end: 20090914
  7. STILNOX [Suspect]
     Route: 048
  8. TEMESTA [Concomitant]
     Route: 048
     Dates: end: 20090909

REACTIONS (3)
  - CONFUSIONAL STATE [None]
  - MYDRIASIS [None]
  - URINARY RETENTION [None]
